FAERS Safety Report 4377212-9 (Version None)
Quarter: 2004Q2

REPORT INFORMATION
  Report Type: 
  Country: None (occurrence: None)
  Receive Date: 20040609
  Receipt Date: 20040217
  Transmission Date: 20050107
  Serious: No
  Sender: FDA-Public Use
  Company Number: 2004199652US

PATIENT

DRUGS (2)
  1. BEXTRA [Suspect]
     Indication: OSTEOARTHRITIS
     Dates: start: 20030201, end: 20030801
  2. ASPIRIN [Concomitant]

REACTIONS (1)
  - HAEMOPTYSIS [None]
